FAERS Safety Report 4497875-7 (Version None)
Quarter: 2004Q4

REPORT INFORMATION
  Report Type: 
  Country: None (occurrence: None)
  Receive Date: 20041108
  Receipt Date: 20041102
  Transmission Date: 20050328
  Serious: Yes (Death)
  Sender: FDA-Public Use
  Company Number: 003289

PATIENT
  Age: 63 Year
  Sex: Female

DRUGS (6)
  1. MEDROXYPROGESTERONE ACETATE [Suspect]
     Dosage: ORAL
     Route: 048
     Dates: start: 19890630, end: 20010121
  2. MEDROXYPROGESTERONE ACETATE [Suspect]
     Dosage: ORAL
     Route: 048
     Dates: start: 20010503, end: 20010701
  3. PROVERA [Suspect]
     Dosage: ORAL
     Route: 048
     Dates: start: 19890630, end: 20010121
  4. PREMARIN [Suspect]
     Dosage: ORAL
     Route: 048
     Dates: start: 19890630, end: 20010121
  5. PREMARIN [Suspect]
     Dosage: ORAL
     Route: 048
     Dates: start: 20010503, end: 20010701
  6. MEDROXYPROGESTERONE ACETATE [Suspect]
     Dosage: ORAL
     Route: 048
     Dates: start: 20010121, end: 20010503

REACTIONS (1)
  - BREAST CANCER METASTATIC [None]
